FAERS Safety Report 4368994-0 (Version None)
Quarter: 2004Q2

REPORT INFORMATION
  Report Type: 
  Country: None (occurrence: None)
  Receive Date: 20040602
  Receipt Date: 20040602
  Transmission Date: 20050107
  Serious: Yes (Other)
  Sender: FDA-Public Use
  Company Number: None

PATIENT
  Age: 77 Year
  Sex: Male
  Weight: 100 kg

DRUGS (1)
  1. DEFEROXAMINE MESYLATE [Suspect]
     Indication: MYELODYSPLASTIC SYNDROME
     Dosage: 2 G SQ QD
     Route: 058

REACTIONS (2)
  - INJECTION SITE URTICARIA [None]
  - PHARMACEUTICAL PRODUCT COMPLAINT [None]
